FAERS Safety Report 9821788 (Version 1)
Quarter: 2014Q1

REPORT INFORMATION
  Report Type: Spontaneous
  Country: IT (occurrence: IT)
  Receive Date: 20140116
  Receipt Date: 20140116
  Transmission Date: 20141002
  Serious: Yes (Hospitalization)
  Sender: FDA-Public Use
  Company Number: IT-PFIZER INC-2014012542

PATIENT
  Age: 82 Year
  Sex: Female

DRUGS (7)
  1. ZOLOFT [Suspect]
     Indication: DEPRESSION
     Dosage: 1 DF, 1X/DAY
     Route: 048
     Dates: start: 20130101, end: 20131212
  2. OMEPRAZOLE [Concomitant]
     Dosage: 20 MG, UNK
     Route: 048
  3. CODEINE PHOSPHATE [Concomitant]
     Dosage: UNK
  4. TACHIDOL [Concomitant]
     Dosage: 2 DF, UNK
     Route: 048
  5. LAEVOLAC [Concomitant]
     Dosage: UNK
  6. SIRDALUD [Concomitant]
     Dosage: UNK
     Route: 048
  7. LEXOTAN [Concomitant]
     Dosage: UNK
     Route: 048

REACTIONS (5)
  - Hyponatraemia [Unknown]
  - Pyrexia [Unknown]
  - Partial seizures [Unknown]
  - Salivary hypersecretion [Unknown]
  - Petit mal epilepsy [Unknown]
